FAERS Safety Report 21509502 (Version 1)
Quarter: 2022Q4

REPORT INFORMATION
  Report Type: Report from Study
  Country: US (occurrence: US)
  Receive Date: 20221026
  Receipt Date: 20221026
  Transmission Date: 20230112
  Serious: Yes (Hospitalization, Other)
  Sender: FDA-Public Use
  Company Number: US-MIRM-000576

PATIENT
  Sex: Male

DRUGS (1)
  1. LIVMARLI [Suspect]
     Active Substance: MARALIXIBAT CHLORIDE
     Route: 048

REACTIONS (6)
  - Post procedural haemorrhage [Recovered/Resolved]
  - Pruritus [Unknown]
  - Soft tissue mass [Unknown]
  - Jaundice [Unknown]
  - Groin infection [Unknown]
  - Product dose omission in error [Unknown]
